FAERS Safety Report 8065200-0 (Version None)
Quarter: 2012Q1

REPORT INFORMATION
  Report Type: 
  Country: None (occurrence: None)
  Receive Date: 20120124
  Receipt Date: 20120113
  Transmission Date: 20120608
  Serious: Yes (Other)
  Sender: FDA-Public Use
  Company Number: US-JNJFOC-20120105426

PATIENT
  Sex: Male
  Weight: 90.72 kg

DRUGS (4)
  1. TETRACYCLINE [Suspect]
     Indication: DENTAL IMPLANTATION
     Route: 065
     Dates: start: 20111101, end: 20111101
  2. REMICADE [Suspect]
     Indication: COLITIS ULCERATIVE
     Route: 042
     Dates: start: 20080101
  3. ANTIBIOTICS NOS [Suspect]
     Indication: TOOTH EXTRACTION
     Route: 065
  4. LIPITOR [Suspect]
     Indication: BLOOD CHOLESTEROL
     Route: 048
     Dates: start: 20110301, end: 20111201

REACTIONS (2)
  - RASH [None]
  - BLOOD CHOLESTEROL INCREASED [None]
